FAERS Safety Report 16030900 (Version 1)
Quarter: 2019Q1

REPORT INFORMATION
  Report Type: Spontaneous
  Country: US (occurrence: US)
  Receive Date: 20190304
  Receipt Date: 20190304
  Transmission Date: 20190418
  Serious: No
  Sender: FDA-Public Use
  Company Number: US-PFIZER INC-2019086159

PATIENT
  Age: 72 Year
  Sex: Female

DRUGS (1)
  1. LATANOPROST. [Suspect]
     Active Substance: LATANOPROST
     Indication: GLAUCOMA
     Dosage: 1 GTT, 1X/DAY, (0.005%, ONE DROP PER DAY)

REACTIONS (3)
  - Product packaging quantity issue [Unknown]
  - Loss of personal independence in daily activities [Unknown]
  - Visual impairment [Unknown]
